FAERS Safety Report 19430031 (Version 4)
Quarter: 2023Q1

REPORT INFORMATION
  Report Type: Spontaneous
  Country: US (occurrence: US)
  Receive Date: 20210617
  Receipt Date: 20230314
  Transmission Date: 20230417
  Serious: Yes (Hospitalization)
  Sender: FDA-Public Use
  Company Number: US-PFIZER INC-2021324987

PATIENT
  Age: 56 Year
  Sex: Male

DRUGS (2)
  1. INLYTA [Suspect]
     Active Substance: AXITINIB
     Dosage: 5 MG, 2X/DAY (TAKE 1 TABLET BY MOUTH TWICE DAILY)
     Route: 048
     Dates: start: 2019
  2. INLYTA [Suspect]
     Active Substance: AXITINIB
     Dosage: 5 MG
     Dates: start: 20200422

REACTIONS (4)
  - Renal tumour excision [Unknown]
  - Nausea [Unknown]
  - Product dose omission issue [Unknown]
  - Hypertension [Unknown]

NARRATIVE: CASE EVENT DATE: 20190101
